FAERS Safety Report 20684840 (Version 2)
Quarter: 2022Q2

REPORT INFORMATION
  Report Type: Spontaneous
  Country: JP (occurrence: JP)
  Receive Date: 20220407
  Receipt Date: 20220608
  Transmission Date: 20220721
  Serious: Yes (Other)
  Sender: FDA-Public Use
  Company Number: JP-PFIZER INC-202200477150

PATIENT
  Age: 58 Year
  Sex: Female
  Weight: 64.8 kg

DRUGS (7)
  1. LORBRENA [Suspect]
     Active Substance: LORLATINIB
     Indication: Non-small cell lung cancer
     Dosage: 100 MG, DAILY
     Dates: start: 20200703, end: 20200728
  2. LORBRENA [Suspect]
     Active Substance: LORLATINIB
     Dosage: 75 MG, DAILY
     Dates: start: 20200803, end: 20200903
  3. LORBRENA [Suspect]
     Active Substance: LORLATINIB
     Dosage: 50 MG, DAILY
     Dates: start: 20200910, end: 20201001
  4. LORBRENA [Suspect]
     Active Substance: LORLATINIB
     Dosage: 75 MG, DAILY
     Dates: start: 20201002, end: 20201202
  5. LORBRENA [Suspect]
     Active Substance: LORLATINIB
     Dosage: 75-50 MG, DAILY
     Dates: start: 20201203, end: 20210107
  6. LORBRENA [Suspect]
     Active Substance: LORLATINIB
     Dosage: 50 MG, DAILY
     Dates: start: 20210114, end: 20210415
  7. LORBRENA [Suspect]
     Active Substance: LORLATINIB
     Dosage: UNK

REACTIONS (1)
  - Carcinoembryonic antigen increased [Unknown]
